FAERS Safety Report 6844287-4 (Version None)
Quarter: 2010Q3

REPORT INFORMATION
  Report Type: 
  Country: None (occurrence: None)
  Receive Date: 20100715
  Receipt Date: 20100707
  Transmission Date: 20110219
  Serious: Yes (Disabling, Other)
  Sender: FDA-Public Use
  Company Number: US-PFIZER INC-2005081175

PATIENT
  Sex: Female
  Weight: 86.2 kg

DRUGS (4)
  1. LIPITOR [Suspect]
     Indication: BLOOD CHOLESTEROL INCREASED
     Dosage: 10 MG, 1X/DAY
     Dates: start: 20030801
  2. LIPITOR [Suspect]
     Indication: HYPERLIPIDAEMIA
  3. SYNTHROID [Concomitant]
     Dosage: UNK
     Dates: start: 20030801, end: 20030901
  4. RETIN-A [Concomitant]
     Dosage: UNK

REACTIONS (15)
  - ANTINUCLEAR ANTIBODY POSITIVE [None]
  - DERMATITIS EXFOLIATIVE GENERALISED [None]
  - DERMATOMYOSITIS [None]
  - EOSINOPHILIA [None]
  - ERYTHEMA [None]
  - MUSCULAR WEAKNESS [None]
  - MUSCULOSKELETAL STIFFNESS [None]
  - MYALGIA [None]
  - OEDEMA PERIPHERAL [None]
  - PHOTOSENSITIVITY REACTION [None]
  - PULMONARY FIBROSIS [None]
  - RASH [None]
  - SCAR [None]
  - TACHYCARDIA [None]
  - XEROSIS [None]
